FAERS Safety Report 6419542-2 (Version None)
Quarter: 2009Q4

REPORT INFORMATION
  Report Type: 
  Country: None (occurrence: None)
  Receive Date: 20091029
  Receipt Date: 20091002
  Transmission Date: 20100525
  Serious: No
  Sender: FDA-Public Use
  Company Number: BR-JNJFOC-20091001392

PATIENT
  Age: 90 Year
  Sex: Male
  Weight: 85 kg

DRUGS (7)
  1. ULTRACET [Suspect]
     Indication: ANALGESIC THERAPY
     Route: 048
  2. LIPITOR [Concomitant]
     Route: 065
  3. ALLOPURINOL [Concomitant]
     Route: 065
  4. PROSTAT NOS [Concomitant]
     Route: 065
  5. CONCOR [Concomitant]
     Route: 065
  6. ALOIS [Concomitant]
     Route: 065
  7. VASCLIN [Concomitant]
     Route: 065

REACTIONS (3)
  - DRY MOUTH [None]
  - MUSCULAR WEAKNESS [None]
  - PLICATED TONGUE [None]
